FAERS Safety Report 17264359 (Version 1)
Quarter: 2020Q1

REPORT INFORMATION
  Report Type: Report from Study
  Country: US (occurrence: US)
  Receive Date: 20200113
  Receipt Date: 20200113
  Transmission Date: 20200409
  Serious: Yes (Hospitalization)
  Sender: FDA-Public Use
  Company Number: US-BAUSCH-BL-2020-000554

PATIENT
  Age: 57 Year
  Sex: Female

DRUGS (2)
  1. XIFAXAN [Suspect]
     Active Substance: RIFAXIMIN
     Indication: HEPATIC ENCEPHALOPATHY
     Dosage: START DATE: ABOUT 2 MONTHS AGO FROM THE DATE OF THIS REPORT
     Route: 048
     Dates: start: 201911, end: 201912
  2. XIFAXAN [Suspect]
     Active Substance: RIFAXIMIN
     Route: 048

REACTIONS (6)
  - Pneumonia [Unknown]
  - Diarrhoea [Recovered/Resolved]
  - Intra-abdominal fluid collection [Unknown]
  - Vomiting [Recovered/Resolved]
  - Therapy cessation [Unknown]
  - Weight increased [Unknown]

NARRATIVE: CASE EVENT DATE: 2019
